FAERS Safety Report 10004631 (Version 1)
Quarter: 2014Q1

REPORT INFORMATION
  Report Type: Spontaneous
  Country: GB (occurrence: GB)
  Receive Date: 20140312
  Receipt Date: 20140312
  Transmission Date: 20141002
  Serious: Yes (Hospitalization)
  Sender: FDA-Public Use
  Company Number: GB-MYLANLABS-2014S1004627

PATIENT
  Age: 97 Year
  Sex: Female
  Weight: 60.65 kg

DRUGS (1)
  1. GALANTAMINE [Suspect]
     Indication: DEMENTIA
     Route: 048
     Dates: end: 20140121

REACTIONS (4)
  - Gastrointestinal haemorrhage [Recovered/Resolved]
  - Dementia [Unknown]
  - Agitation [Unknown]
  - Confusional state [Unknown]
